FAERS Safety Report 11744984 (Version 2)
Quarter: 2015Q4

REPORT INFORMATION
  Report Type: Spontaneous
  Country: CA (occurrence: CA)
  Receive Date: 20151117
  Receipt Date: 20151123
  Transmission Date: 20160304
  Serious: Yes (Other)
  Sender: FDA-Public Use
  Company Number: CA-AMGEN-CANSP2015120429

PATIENT
  Sex: Female

DRUGS (2)
  1. ENBREL [Suspect]
     Active Substance: ETANERCEPT
     Indication: RHEUMATOID ARTHRITIS
     Dosage: 25 MG, Q 3DAY (EVERY THIRD DAY)
     Route: 065
  2. MOTRIN [Concomitant]
     Active Substance: IBUPROFEN
     Dosage: UNK

REACTIONS (5)
  - Encephalitis viral [Unknown]
  - Rheumatoid arthritis [Unknown]
  - Lung disorder [Unknown]
  - Asthma [Unknown]
  - Infection [Unknown]

NARRATIVE: CASE EVENT DATE: 2012
